FAERS Safety Report 21652101 (Version 1)
Quarter: 2022Q4

REPORT INFORMATION
  Report Type: Spontaneous
  Country: US (occurrence: None)
  Receive Date: 20221125
  Receipt Date: 20221125
  Transmission Date: 20230112
  Serious: Yes (Other)
  Sender: FDA-Public Use
  Company Number: None

PATIENT
  Age: 62 Year
  Sex: Female
  Weight: 128.25 kg

DRUGS (5)
  1. MELOXICAM [Suspect]
     Active Substance: MELOXICAM
     Indication: Pain in extremity
     Dosage: FREQUENCY : DAILY;?
     Route: 048
     Dates: start: 20221116, end: 20221120
  2. OLMESARTAN [Concomitant]
     Active Substance: OLMESARTAN
  3. VITAMINS [Concomitant]
     Active Substance: VITAMINS
  4. VITAMIN D [Concomitant]
     Active Substance: VITAMIN D NOS
  5. VITAMIN B12 [Concomitant]
     Active Substance: CYANOCOBALAMIN

REACTIONS (6)
  - Vomiting [None]
  - Asthenia [None]
  - Vision blurred [None]
  - Heart rate increased [None]
  - Chromaturia [None]
  - Headache [None]

NARRATIVE: CASE EVENT DATE: 20221121
